FAERS Safety Report 12267157 (Version 4)
Quarter: 2016Q2

REPORT INFORMATION
  Report Type: Spontaneous
  Country: GB (occurrence: GB)
  Receive Date: 20160414
  Receipt Date: 20160624
  Transmission Date: 20160815
  Serious: Yes (Hospitalization)
  Sender: FDA-Public Use
  Company Number: GB-AMGEN-GBRSP2016018299

PATIENT
  Age: 51 Year
  Sex: Female

DRUGS (2)
  1. NEULASTA [Suspect]
     Active Substance: PEGFILGRASTIM
     Indication: PRODUCT USED FOR UNKNOWN INDICATION
     Dosage: 6 MG, UNK
     Route: 058
  2. MOVICOL [Concomitant]
     Active Substance: POLYETHYLENE GLYCOL 3350\POTASSIUM CHLORIDE\SODIUM BICARBONATE\SODIUM CHLORIDE
     Indication: CONSTIPATION
     Dosage: UNK

REACTIONS (21)
  - Oral disorder [Unknown]
  - Constipation [Unknown]
  - Lethargy [Unknown]
  - Hypophagia [Not Recovered/Not Resolved]
  - Fatigue [Unknown]
  - Oral pain [Unknown]
  - Alopecia [Unknown]
  - Neuropathy peripheral [Unknown]
  - Back pain [Unknown]
  - Proctalgia [Unknown]
  - Insomnia [Unknown]
  - Inadequate diet [Unknown]
  - Musculoskeletal pain [Unknown]
  - Influenza [Recovering/Resolving]
  - Dysgeusia [Unknown]
  - Catheter site related reaction [Unknown]
  - Asthenia [Unknown]
  - Eastern Cooperative Oncology Group performance status worsened [Unknown]
  - Nutritional condition abnormal [Unknown]
  - Oropharyngeal pain [Unknown]
  - Nausea [Recovering/Resolving]
